FAERS Safety Report 9924650 (Version 1)
Quarter: 2014Q1

REPORT INFORMATION
  Report Type: Spontaneous
  Country: TR (occurrence: None)
  Receive Date: 20140220
  Receipt Date: 20140220
  Transmission Date: 20141002
  Serious: Yes (Death, Hospitalization)
  Sender: FDA-Public Use
  Company Number: UTC-044653

PATIENT
  Age: 32 Year
  Sex: Male

DRUGS (3)
  1. REMODULIN [Suspect]
     Indication: PULMONARY ARTERIAL HYPERTENSION
     Dosage: 0.26 ML/HR, SUBCUTANEOUS
     Route: 058
     Dates: start: 20131215, end: 20140128
  2. BOSENTAN (UNKNOWN) [Concomitant]
  3. ILOPROST (UNKNOWN) [Concomitant]

REACTIONS (3)
  - Hypoxia [None]
  - Cardiac arrest [None]
  - Respiratory arrest [None]
